FAERS Safety Report 5545459-1 (Version None)
Quarter: 2007Q4

REPORT INFORMATION
  Report Type: 
  Country: None (occurrence: None)
  Receive Date: 20071211
  Receipt Date: 20071126
  Transmission Date: 20080405
  Serious: Yes (Hospitalization)
  Sender: FDA-Public Use
  Company Number: US-ELI_LILLY_AND_COMPANY-US200710000157

PATIENT
  Sex: Male
  Weight: 31.746 kg

DRUGS (5)
  1. STRATTERA [Suspect]
     Indication: ATTENTION DEFICIT/HYPERACTIVITY DISORDER
     Dosage: 18 MG, EACH MORNING
     Route: 048
     Dates: start: 20070905, end: 20070916
  2. STRATTERA [Suspect]
     Dosage: 25 MG, EACH MORNING
     Dates: start: 20071001, end: 20071008
  3. STRATTERA [Suspect]
     Dosage: 18 MG, EACH MORNING
     Route: 048
     Dates: start: 20070101, end: 20071116
  4. CLARITIN [Concomitant]
     Dosage: 5 MG, DAILY (1/D)
     Route: 048
  5. SINGULAIR [Concomitant]
     Dosage: 5 MG, EACH EVENING
     Route: 048

REACTIONS (7)
  - ABDOMINAL PAIN UPPER [None]
  - DEHYDRATION [None]
  - HEADACHE [None]
  - HYPERTENSION [None]
  - NAUSEA [None]
  - TRANCE [None]
  - VOMITING [None]
